FAERS Safety Report 9238695 (Version 1)
Quarter: 2013Q2

REPORT INFORMATION
  Report Type: Spontaneous
  Country: US (occurrence: None)
  Receive Date: 20130417
  Receipt Date: 20130417
  Transmission Date: 20140414
  Serious: Yes (Other)
  Sender: FDA-Public Use
  Company Number: None

PATIENT
  Age: 55 Year
  Sex: Female
  Weight: 70 kg

DRUGS (1)
  1. QUETIAPINE [Suspect]
     Indication: BIPOLAR I DISORDER
     Dosage: 50MG  TWO - FOUR PO
     Route: 048
     Dates: start: 201104, end: 20120116

REACTIONS (4)
  - Pain in extremity [None]
  - Pain in extremity [None]
  - Headache [None]
  - Abdominal pain [None]
